FAERS Safety Report 4958390-7 (Version None)
Quarter: 2006Q1

REPORT INFORMATION
  Report Type: 
  Country: None (occurrence: None)
  Receive Date: 20060329
  Receipt Date: 20060329
  Transmission Date: 20060701
  Serious: Yes (Hospitalization)
  Sender: FDA-Public Use
  Company Number: None

PATIENT
  Age: 57 Year
  Sex: Male
  Weight: 95 kg

DRUGS (5)
  1. SULFASALAZINE [Suspect]
     Indication: ARTHRITIS
     Dosage: 500 MG   TID   PO
     Route: 048
     Dates: start: 20050413, end: 20050721
  2. FELODIPINE [Concomitant]
  3. SILDENAFIL [Concomitant]
  4. ETODOLAC [Concomitant]
  5. OMEPRAZOLE [Concomitant]

REACTIONS (5)
  - ABDOMINAL PAIN LOWER [None]
  - DECREASED APPETITE [None]
  - DIVERTICULITIS [None]
  - FATIGUE [None]
  - PYREXIA [None]
